FAERS Safety Report 9720667 (Version 2)
Quarter: 2013Q4

REPORT INFORMATION
  Report Type: Report from Study
  Country: KR (occurrence: KR)
  Receive Date: 20131129
  Receipt Date: 20131212
  Transmission Date: 20140711
  Serious: No
  Sender: FDA-Public Use
  Company Number: PHHY2013KR137911

PATIENT
  Age: 32 Year
  Sex: Female

DRUGS (4)
  1. AMN107 [Suspect]
     Indication: CHRONIC MYELOID LEUKAEMIA
     Dosage: 600 MG, PER DAY
     Route: 048
     Dates: start: 20121012
  2. ALLEGRA [Concomitant]
     Indication: ASTHMA
     Dosage: 120 MG, UNK
     Route: 048
     Dates: start: 20121012, end: 20121210
  3. SERETIDE DISKUS [Concomitant]
     Indication: ASTHMA
     Dates: start: 20121012, end: 20121210
  4. OMNARIS [Concomitant]
     Indication: ASTHMA
     Dates: start: 20121012, end: 20121210

REACTIONS (1)
  - Myalgia [Recovered/Resolved]
